FAERS Safety Report 7548095-0 (Version None)
Quarter: 2011Q2

REPORT INFORMATION
  Report Type: 
  Country: None (occurrence: None)
  Receive Date: 20110615
  Receipt Date: 20110518
  Transmission Date: 20111010
  Serious: Yes (Other)
  Sender: FDA-Public Use
  Company Number: US-BAYER-2010-003281

PATIENT
  Age: 25 Year
  Sex: Female
  Weight: 156 kg

DRUGS (7)
  1. DROSPIRENONE AND ETHINYL ESTRADIOL [Suspect]
     Dosage: UNK
     Dates: start: 20090701, end: 20091101
  2. YASMIN [Suspect]
     Indication: CONTRACEPTION
     Dosage: UNK
     Dates: start: 20040801, end: 20071201
  3. MOTRIN [Concomitant]
     Indication: PAIN
     Dosage: 800 MG, UNK
     Route: 048
  4. ADIPEX [Concomitant]
     Indication: MEDICAL DIET
     Dosage: 37.5 MG, UNK
     Route: 048
  5. DROSPIRENONE AND ETHINYL ESTRADIOL [Suspect]
     Indication: CONTRACEPTION
     Dosage: UNK
     Dates: start: 20080801, end: 20090301
  6. PROTONIX [Concomitant]
     Dosage: 40 MG, UNK
     Route: 048
  7. YASMIN [Suspect]
     Dosage: UNK
     Dates: start: 20080401, end: 20080701

REACTIONS (12)
  - CHOLECYSTECTOMY [None]
  - FLATULENCE [None]
  - INJURY [None]
  - ABDOMINAL DISTENSION [None]
  - CHOLECYSTITIS CHRONIC [None]
  - CONSTIPATION [None]
  - DIARRHOEA [None]
  - SCAR [None]
  - PAIN [None]
  - DEPRESSION [None]
  - DYSPEPSIA [None]
  - ANXIETY [None]
